FAERS Safety Report 7495266-8 (Version None)
Quarter: 2011Q2

REPORT INFORMATION
  Report Type: 
  Country: None (occurrence: None)
  Receive Date: 20110523
  Receipt Date: 20110518
  Transmission Date: 20111010
  Serious: Yes (Death)
  Sender: FDA-Public Use
  Company Number: US-AMGEN-USASP2010006984

PATIENT
  Sex: Male

DRUGS (3)
  1. CORTICOSTEROIDS [Concomitant]
  2. CYCLOPHOSPHAMIDE [Concomitant]
  3. NPLATE [Suspect]
     Indication: THROMBOCYTOPENIA
     Dates: start: 20100529

REACTIONS (1)
  - MULTIPLE MYELOMA [None]
